FAERS Safety Report 13066944 (Version 1)
Quarter: 2016Q4

REPORT INFORMATION
  Report Type: Spontaneous
  Country: US (occurrence: US)
  Receive Date: 20161227
  Receipt Date: 20161227
  Transmission Date: 20170207
  Serious: No
  Sender: FDA-Public Use
  Company Number: US-SHIRE-US201620268

PATIENT
  Age: 81 Year
  Sex: Female

DRUGS (2)
  1. XIIDRA [Suspect]
     Active Substance: LIFITEGRAST
     Indication: DRY EYE
     Dosage: 1 GTT (BOTH EYES), 1X/DAY:QD (IN THE EVENING)
     Route: 047
     Dates: start: 20161221
  2. PAZEO [Concomitant]
     Active Substance: OLOPATADINE HYDROCHLORIDE
     Indication: DRY EYE
     Dosage: 1 GTT (BOTH EYES), 1X/DAY:QD (IN THE MORNING)
     Route: 047

REACTIONS (3)
  - Instillation site pain [Recovered/Resolved]
  - Wrong technique in product usage process [Unknown]
  - Instillation site reaction [Recovered/Resolved]

NARRATIVE: CASE EVENT DATE: 20161221
